FAERS Safety Report 13958285 (Version 1)
Quarter: 2017Q3

REPORT INFORMATION
  Report Type: Spontaneous
  Country: BR (occurrence: BR)
  Receive Date: 20170912
  Receipt Date: 20170912
  Transmission Date: 20171128
  Serious: Yes (Other)
  Sender: FDA-Public Use
  Company Number: PHHY2017BR130804

PATIENT
  Sex: Female

DRUGS (1)
  1. DESOGESTREL [Suspect]
     Active Substance: DESOGESTREL
     Indication: PRODUCT USED FOR UNKNOWN INDICATION
     Route: 065

REACTIONS (5)
  - Polyp [Unknown]
  - Feeling abnormal [Unknown]
  - Migraine [Unknown]
  - Haemorrhage [Unknown]
  - Swelling [Unknown]
